FAERS Safety Report 18706482 (Version 1)
Quarter: 2021Q1

REPORT INFORMATION
  Report Type: Spontaneous
  Country: CA (occurrence: CA)
  Receive Date: 20210106
  Receipt Date: 20210106
  Transmission Date: 20210419
  Serious: Yes (Other)
  Sender: FDA-Public Use
  Company Number: CA-TAKEDA-2021TUS000085

PATIENT
  Age: 6 Year
  Sex: Male

DRUGS (2)
  1. APO?METHYLPHENIDATE (METHYLPHENIDATE HYDROCHLORIDE) [Suspect]
     Active Substance: METHYLPHENIDATE HYDROCHLORIDE
     Indication: ABNORMAL BEHAVIOUR
     Dosage: 10 MILLIGRAM, UNKNOWN FREQUENCY
     Route: 065
  2. 503 (GUANFACINE HYDROCHLORIDE) [Suspect]
     Active Substance: GUANFACINE HYDROCHLORIDE
     Indication: ABNORMAL BEHAVIOUR
     Dosage: 1 MILLIGRAM, UNKNOWN FREQUENCY
     Route: 065

REACTIONS (1)
  - Drug ineffective [Unknown]
